FAERS Safety Report 21876909 (Version 1)
Quarter: 2023Q1

REPORT INFORMATION
  Report Type: Spontaneous
  Country: DE (occurrence: DE)
  Receive Date: 20230118
  Receipt Date: 20230118
  Transmission Date: 20230418
  Serious: Yes (Other)
  Sender: FDA-Public Use
  Company Number: DE-ABBVIE-4219449

PATIENT
  Age: 33 Year
  Sex: Female

DRUGS (23)
  1. LEFLUNOMIDE [Suspect]
     Active Substance: LEFLUNOMIDE
     Indication: Polyarthritis
     Dosage: 10 MILLIGRAM, ONCE A DAY
     Route: 065
     Dates: start: 200804
  2. UPADACITINIB [Suspect]
     Active Substance: UPADACITINIB
     Indication: Polyarthritis
     Dosage: 15 MILLIGRAM, ONCE A DAY
     Route: 048
     Dates: start: 202102
  3. CERTOLIZUMAB [Suspect]
     Active Substance: CERTOLIZUMAB
     Indication: Polyarthritis
     Dosage: 200 MILLIGRAM
     Route: 065
     Dates: start: 201010
  4. CERTOLIZUMAB [Suspect]
     Active Substance: CERTOLIZUMAB
     Dosage: 200 DOSAGE FORM
     Route: 058
     Dates: start: 201104
  5. CYCLOSPORINE [Suspect]
     Active Substance: CYCLOSPORINE
     Indication: Polyarthritis
     Dosage: UNK
     Route: 065
     Dates: start: 201104
  6. METHOTREXATE [Suspect]
     Active Substance: METHOTREXATE
     Indication: Polyarthritis
     Dosage: UNK
     Route: 065
     Dates: start: 200604, end: 200804
  7. METHOTREXATE [Suspect]
     Active Substance: METHOTREXATE
     Dosage: UNK
     Route: 065
     Dates: start: 201107
  8. TOCILIZUMAB [Suspect]
     Active Substance: TOCILIZUMAB
     Indication: Polyarthritis
     Dosage: UNK
     Route: 065
     Dates: start: 201007, end: 201009
  9. TOCILIZUMAB [Suspect]
     Active Substance: TOCILIZUMAB
     Dosage: UNK
     Route: 058
     Dates: start: 201401
  10. BARICITINIB [Suspect]
     Active Substance: BARICITINIB
     Indication: Polyarthritis
     Dosage: 4 MILLIGRAM
     Route: 065
     Dates: start: 201806
  11. ADALIMUMAB [Suspect]
     Active Substance: ADALIMUMAB
     Indication: Rheumatoid arthritis
     Dosage: UNK
     Route: 058
     Dates: start: 20070417, end: 20070606
  12. ADALIMUMAB [Suspect]
     Active Substance: ADALIMUMAB
     Dosage: UNK
     Route: 058
     Dates: start: 200908
  13. VITAMIN D [Concomitant]
     Active Substance: VITAMIN D NOS
     Indication: Osteoporosis prophylaxis
     Dosage: UNK
     Route: 065
  14. INFLIXIMAB [Concomitant]
     Active Substance: INFLIXIMAB
     Indication: Polyarthritis
     Dosage: UNK
     Route: 065
     Dates: start: 201002
  15. RITUXIMAB [Concomitant]
     Active Substance: RITUXIMAB
     Indication: Polyarthritis
     Dosage: UNK, LAST ADMINISTRATION:2011
     Route: 065
     Dates: start: 20110728
  16. RITUXIMAB [Concomitant]
     Active Substance: RITUXIMAB
     Dosage: UNK, LAST ADMINISTRATION:2011
     Route: 065
     Dates: start: 201111
  17. RITUXIMAB [Concomitant]
     Active Substance: RITUXIMAB
     Dosage: UNK
     Route: 065
     Dates: start: 201112, end: 201112
  18. PREDNISOLONE [Concomitant]
     Active Substance: PREDNISOLONE
     Indication: Rheumatoid arthritis
     Dosage: 5 MILLIGRAM
     Route: 065
  19. PREDNISOLONE [Concomitant]
     Active Substance: PREDNISOLONE
     Dosage: 7.5 MILLIGRAM
     Route: 065
  20. PREDNISOLONE [Concomitant]
     Active Substance: PREDNISOLONE
     Dosage: 2.5 MILLIGRAM
     Route: 065
  21. PREDNISOLONE [Concomitant]
     Active Substance: PREDNISOLONE
     Dosage: 10 MILLIGRAM
     Route: 065
  22. PREDNISOLONE [Concomitant]
     Active Substance: PREDNISOLONE
     Dosage: 20 MILLIGRAM
     Route: 065
  23. FOLIC ACID [Concomitant]
     Active Substance: FOLIC ACID
     Indication: Vitamin supplementation
     Dosage: UNK
     Route: 065

REACTIONS (9)
  - Polyarthritis [Unknown]
  - Vomiting [Unknown]
  - Live birth [Unknown]
  - Nausea [Unknown]
  - Aversion [Unknown]
  - Drug ineffective [Unknown]
  - Maternal exposure during pregnancy [Unknown]
  - Unevaluable event [Unknown]
  - Nodule [Unknown]

NARRATIVE: CASE EVENT DATE: 20070101
